FAERS Safety Report 14939568 (Version 1)
Quarter: 2018Q2

REPORT INFORMATION
  Report Type: Report from Study
  Country: DE (occurrence: DE)
  Receive Date: 20180525
  Receipt Date: 20180525
  Transmission Date: 20180711
  Serious: Yes (Hospitalization, Other)
  Sender: FDA-Public Use
  Company Number: DE-PFIZER INC-2018210239

PATIENT
  Age: 43 Year
  Sex: Female

DRUGS (6)
  1. FLUPIRTINE [Suspect]
     Active Substance: FLUPIRTINE
     Indication: BACK PAIN
     Dosage: 200 UNK, UNK
  2. SEROQUEL [Suspect]
     Active Substance: QUETIAPINE FUMARATE
  3. IBUPROFEN. [Suspect]
     Active Substance: IBUPROFEN
  4. NALOXONE HYDROCHLORIDE/TILIDINE HYDROCHLORIDE [Suspect]
     Active Substance: NALOXONE HYDROCHLORIDE\TILIDINE HYDROCHLORIDE
  5. MIRTAZAPINE. [Suspect]
     Active Substance: MIRTAZAPINE
  6. TRUXAL /00012101/ [Suspect]
     Active Substance: CHLORPROTHIXENE

REACTIONS (7)
  - Alanine aminotransferase increased [None]
  - Blood bilirubin increased [None]
  - Drug-induced liver injury [Recovering/Resolving]
  - Gamma-glutamyltransferase increased [None]
  - Idiosyncratic drug reaction [None]
  - Aspartate aminotransferase increased [None]
  - Blood alkaline phosphatase increased [None]
